FAERS Safety Report 9935117 (Version 1)
Quarter: 2014Q1

REPORT INFORMATION
  Report Type: Spontaneous
  Country: US (occurrence: US)
  Receive Date: 20140228
  Receipt Date: 20140228
  Transmission Date: 20141002
  Serious: Yes (Other)
  Sender: FDA-Public Use
  Company Number: US-PFIZER INC-2014055793

PATIENT
  Sex: Female

DRUGS (2)
  1. PREMARIN [Suspect]
     Dosage: UNK
     Dates: start: 2003
  2. PREMARIN [Suspect]
     Dosage: UNK

REACTIONS (3)
  - Transitional cell carcinoma [Unknown]
  - Pyuria [Recovered/Resolved]
  - Cystitis noninfective [Unknown]
